FAERS Safety Report 19786111 (Version 1)
Quarter: 2021Q3

REPORT INFORMATION
  Report Type: Spontaneous
  Country: GB (occurrence: GB)
  Receive Date: 20210903
  Receipt Date: 20210903
  Transmission Date: 20211014
  Serious: Yes (Hospitalization, Other)
  Sender: FDA-Public Use
  Company Number: GB-PFIZER INC-202101096043

PATIENT
  Age: 70 Year
  Sex: Female

DRUGS (2)
  1. IRINOTECAN HCL [Suspect]
     Active Substance: IRINOTECAN HYDROCHLORIDE
     Indication: COLORECTAL CANCER STAGE IV
     Dosage: UNK, CYCLIC (EVERY TWO WEEKS)
  2. FOLFOX [Suspect]
     Active Substance: FLUOROURACIL\LEUCOVORIN CALCIUM\OXALIPLATIN
     Dosage: UNK, CYCLIC (EVERY TWO WEEKS)

REACTIONS (9)
  - Fatigue [Unknown]
  - Haemorrhage [Unknown]
  - Constipation [Unknown]
  - Nausea [Unknown]
  - Bowel movement irregularity [Unknown]
  - Vomiting [Unknown]
  - Balance disorder [Unknown]
  - Diarrhoea [Unknown]
  - Mucosal inflammation [Unknown]
